FAERS Safety Report 7200740-5 (Version None)
Quarter: 2010Q4

REPORT INFORMATION
  Report Type: 
  Country: None (occurrence: None)
  Receive Date: 20101228
  Receipt Date: 20101220
  Transmission Date: 20110411
  Serious: Yes (Hospitalization)
  Sender: FDA-Public Use
  Company Number: JP-ABBOTT-10P-087-0684103-00

PATIENT
  Sex: Female
  Weight: 41 kg

DRUGS (13)
  1. HUMIRA [Suspect]
     Indication: RHEUMATOID ARTHRITIS
     Route: 058
     Dates: start: 20100511, end: 20100719
  2. PREDNISOLONE [Suspect]
     Indication: RHEUMATOID ARTHRITIS
     Dosage: 10 MG DAILY
     Route: 048
     Dates: start: 20100507
  3. PREDNISOLONE [Suspect]
     Indication: SCLERODERMA
     Dosage: 12.5 MG
  4. PREDNISOLONE [Suspect]
     Dosage: 20MG
     Dates: start: 20100715
  5. METHOTREXATE [Concomitant]
     Indication: RHEUMATOID ARTHRITIS
     Route: 048
     Dates: end: 20100723
  6. LOXOPROFEN SODIUM HYDRATE [Concomitant]
     Indication: RHEUMATOID ARTHRITIS
     Route: 048
     Dates: end: 20100723
  7. REBAMIPIDE [Concomitant]
     Indication: GASTRITIS PROPHYLAXIS
     Route: 048
     Dates: end: 20100723
  8. LIMAPROST ALFADEX [Concomitant]
     Indication: SCLERODERMA
     Route: 048
     Dates: end: 20100723
  9. MOSAPRIDE CITRATE HYDRATE [Concomitant]
     Indication: REFLUX OESOPHAGITIS
     Route: 048
     Dates: end: 20100723
  10. TOCOPHEROL CONCENTRATE CAP [Concomitant]
     Indication: SCLERODERMA
     Route: 048
     Dates: end: 20100723
  11. LANSOPRAZOLE [Concomitant]
     Indication: REFLUX OESOPHAGITIS
     Route: 048
  12. FOLIC ACID [Concomitant]
     Indication: PROPHYLAXIS
     Route: 048
     Dates: end: 20100723
  13. FOLIC ACID [Concomitant]
     Indication: ADVERSE DRUG REACTION

REACTIONS (3)
  - BLOOD CREATININE INCREASED [None]
  - MYOSITIS [None]
  - SCLERODERMA [None]
